FAERS Safety Report 15581213 (Version 1)
Quarter: 2018Q4

REPORT INFORMATION
  Report Type: Spontaneous
  Country: US (occurrence: US)
  Receive Date: 20181105
  Receipt Date: 20181105
  Transmission Date: 20190205
  Serious: No
  Sender: FDA-Public Use
  Company Number: US-UNICHEM PHARMACEUTICALS (USA) INC-UCM201807-000185

PATIENT
  Age: 28 Year
  Sex: Male
  Weight: 63.5 kg

DRUGS (1)
  1. LAMOTRIGINE 100 MG TABLETS [Suspect]
     Active Substance: LAMOTRIGINE
     Indication: EPILEPSY
     Dosage: HE STARTED TAKING LAMOTRIGINE 100 MG TABLETS IN AROUND OCT/2017 OR NOV/2017.

REACTIONS (1)
  - Epistaxis [Recovered/Resolved]
